FAERS Safety Report 25644621 (Version 1)
Quarter: 2025Q3

REPORT INFORMATION
  Report Type: Spontaneous
  Country: EU (occurrence: EU)
  Receive Date: 20250805
  Receipt Date: 20250805
  Transmission Date: 20251021
  Serious: Yes (Other)
  Sender: PFIZER
  Company Number: EU-ABBVIE-6384163

PATIENT
  Age: 29 Year
  Sex: Male

DRUGS (10)
  1. ADALIMUMAB [Suspect]
     Active Substance: ADALIMUMAB
     Indication: Crohn^s disease
     Route: 058
     Dates: start: 201904
  2. ADALIMUMAB [Suspect]
     Active Substance: ADALIMUMAB
     Dosage: 40 MG, WEEKLY
     Route: 058
     Dates: start: 202012, end: 202202
  3. ADALIMUMAB [Suspect]
     Active Substance: ADALIMUMAB
     Route: 058
     Dates: start: 2023
  4. RISANKIZUMAB [Suspect]
     Active Substance: RISANKIZUMAB
     Indication: Crohn^s disease
     Route: 042
     Dates: start: 202312, end: 202312
  5. RISANKIZUMAB [Suspect]
     Active Substance: RISANKIZUMAB
     Route: 042
  6. RISANKIZUMAB [Suspect]
     Active Substance: RISANKIZUMAB
     Route: 042
  7. RISANKIZUMAB [Suspect]
     Active Substance: RISANKIZUMAB
     Indication: Crohn^s disease
     Route: 058
  8. UPADACITINIB [Suspect]
     Active Substance: UPADACITINIB
     Indication: Crohn^s disease
     Dosage: FOR 12 WEEKS
     Route: 048
     Dates: start: 202406, end: 202408
  9. UPADACITINIB [Suspect]
     Active Substance: UPADACITINIB
     Dosage: FROM WEEK 13
     Route: 048
     Dates: start: 202408
  10. UPADACITINIB [Suspect]
     Active Substance: UPADACITINIB
     Dosage: 15 MG, 1X/DAY
     Route: 048
     Dates: start: 202501

REACTIONS (9)
  - Crohn^s disease [Unknown]
  - Rectal stenosis [Unknown]
  - Anastomotic stenosis [Unknown]
  - Iron deficiency anaemia [Not Recovered/Not Resolved]
  - Abdominal pain [Unknown]
  - Anal fistula [Unknown]
  - Disease recurrence [Unknown]
  - Stoma site ulcer [Unknown]
  - Inflammation [Unknown]

NARRATIVE: CASE EVENT DATE: 20190401
